FAERS Safety Report 20020232 (Version 1)
Quarter: 2021Q4

REPORT INFORMATION
  Report Type: Spontaneous
  Country: AU (occurrence: AU)
  Receive Date: 20211101
  Receipt Date: 20211101
  Transmission Date: 20220303
  Serious: Yes (Hospitalization, Other)
  Sender: FDA-Public Use
  Company Number: AU-TAKEDA-2021TUS066091

PATIENT
  Sex: Male

DRUGS (4)
  1. VYVANSE [Suspect]
     Active Substance: LISDEXAMFETAMINE DIMESYLATE
     Indication: Attention deficit hyperactivity disorder
     Dosage: 30 MILLIGRAM, QD
     Route: 048
     Dates: start: 201912
  2. VYVANSE [Suspect]
     Active Substance: LISDEXAMFETAMINE DIMESYLATE
     Dosage: 50 MILLIGRAM, QD
     Route: 048
     Dates: start: 202012, end: 202102
  3. VYVANSE [Suspect]
     Active Substance: LISDEXAMFETAMINE DIMESYLATE
     Dosage: 70 MILLIGRAM, QD
     Route: 048
     Dates: start: 20210910
  4. SALINE [Concomitant]
     Active Substance: SODIUM CHLORIDE
     Route: 041

REACTIONS (12)
  - Gait inability [Unknown]
  - Muscle contractions involuntary [Unknown]
  - Impaired work ability [Unknown]
  - Myalgia [Unknown]
  - Pain [Unknown]
  - Diarrhoea [Unknown]
  - Deafness unilateral [Unknown]
  - Back pain [Unknown]
  - Arthralgia [Unknown]
  - Drug ineffective [Unknown]
  - Weight increased [Unknown]
  - Therapy interrupted [Unknown]
